FAERS Safety Report 10354639 (Version 1)
Quarter: 2014Q3

REPORT INFORMATION
  Report Type: Spontaneous
  Country: US (occurrence: None)
  Receive Date: 20140729
  Receipt Date: 20140729
  Transmission Date: 20150326
  Serious: Yes (Disabling)
  Sender: FDA-Public Use
  Company Number: None

PATIENT
  Age: 66 Year
  Sex: Male
  Weight: 97.52 kg

DRUGS (1)
  1. LYRICA [Suspect]
     Active Substance: PREGABALIN
     Indication: NEURALGIA
     Dosage: 1 PILL TWICE DAILY TAKEN BY MOUTH
     Route: 048
     Dates: start: 20140531, end: 20140601

REACTIONS (6)
  - Peripheral swelling [None]
  - Activities of daily living impaired [None]
  - Pain in extremity [None]
  - Joint swelling [None]
  - Arthralgia [None]
  - Autoimmune disorder [None]

NARRATIVE: CASE EVENT DATE: 20140601
